FAERS Safety Report 22981407 (Version 2)
Quarter: 2023Q4

REPORT INFORMATION
  Report Type: Spontaneous
  Country: JP (occurrence: JP)
  Receive Date: 20230925
  Receipt Date: 20231030
  Transmission Date: 20240109
  Serious: No
  Sender: FDA-Public Use
  Company Number: JP-MSD-M2023-39052

PATIENT
  Age: 60 Year
  Sex: Male

DRUGS (2)
  1. LAGEVRIO [Suspect]
     Active Substance: MOLNUPIRAVIR
     Indication: COVID-19 treatment
     Dosage: 800 MILLIGRAM, BID
     Route: 048
     Dates: start: 20230825, end: 20230826
  2. LAGEVRIO [Suspect]
     Active Substance: MOLNUPIRAVIR
     Dosage: 800 MILLIGRAM, ONCE, MORNING
     Route: 048
     Dates: start: 20230827, end: 20230827

REACTIONS (5)
  - Eczema [Recovered/Resolved]
  - Dehydration [Unknown]
  - Liver function test decreased [Unknown]
  - Nausea [Recovering/Resolving]
  - Product use issue [Unknown]

NARRATIVE: CASE EVENT DATE: 20230825
